FAERS Safety Report 10910212 (Version 1)
Quarter: 2015Q1

REPORT INFORMATION
  Report Type: Spontaneous
  Country: US (occurrence: US)
  Receive Date: 20150312
  Receipt Date: 20150312
  Transmission Date: 20150721
  Serious: Yes (Other)
  Sender: FDA-Public Use
  Company Number: US-SA-2014SA099915

PATIENT
  Sex: Female

DRUGS (1)
  1. NASACORT ALLERGY 24HR [Suspect]
     Active Substance: TRIAMCINOLONE ACETONIDE
     Dosage: DOSE: 120 SPRAY?FORM: SPRAYS
     Route: 065

REACTIONS (3)
  - Osteoporosis [Unknown]
  - Visual acuity reduced [Unknown]
  - Glaucoma [Unknown]
